FAERS Safety Report 4818174-7 (Version None)
Quarter: 2005Q3

REPORT INFORMATION
  Report Type: 
  Country: None (occurrence: None)
  Receive Date: 20050929
  Receipt Date: 20050606
  Transmission Date: 20060218
  Serious: No
  Sender: FDA-Public Use
  Company Number: 05P-163-0302425-00

PATIENT
  Age: 42 Year
  Sex: Female
  Weight: 47.6277 kg

DRUGS (7)
  1. HUMIRA [Suspect]
     Indication: RHEUMATOID ARTHRITIS
     Dosage: 40 MG, 1 IN 1 WK, SUBCUTANEOUS
     Route: 058
     Dates: start: 20040501, end: 20050601
  2. METHOTREXATE [Concomitant]
  3. HYDROCHLOROTHIAZIDE [Concomitant]
  4. BENAZEPRIL HYDROCHLORIDE [Concomitant]
  5. IMITREX [Concomitant]
  6. IRON [Concomitant]
  7. MULTI-VITAMINS [Concomitant]

REACTIONS (7)
  - BRONCHITIS [None]
  - INJECTION SITE ERYTHEMA [None]
  - INJECTION SITE PAIN [None]
  - INJECTION SITE URTICARIA [None]
  - MUSCLE SPASMS [None]
  - PNEUMONIA [None]
  - URTICARIA [None]
